FAERS Safety Report 26169741 (Version 1)
Quarter: 2025Q4

REPORT INFORMATION
  Report Type: Spontaneous
  Country: US (occurrence: None)
  Receive Date: 20251217
  Receipt Date: 20251217
  Transmission Date: 20260118
  Serious: Yes (Death)
  Sender: FDA-CTU
  Company Number: None

PATIENT
  Age: 82 Year
  Sex: Female
  Weight: 67.5 kg

DRUGS (1)
  1. SEMAGLUTIDE [Suspect]
     Active Substance: SEMAGLUTIDE
     Indication: Weight decreased
     Dosage: ONCE WEEKLY SUBCUTANEOUS
     Route: 058

REACTIONS (5)
  - Alopecia [None]
  - Gastrointestinal obstruction [None]
  - Sepsis [None]
  - Organ failure [None]
  - Myocardial infarction [None]

NARRATIVE: CASE EVENT DATE: 20251214
